FAERS Safety Report 4476807-1 (Version None)
Quarter: 2004Q4

REPORT INFORMATION
  Report Type: 
  Country: None (occurrence: None)
  Receive Date: 20041012
  Receipt Date: 20040927
  Transmission Date: 20050328
  Serious: No
  Sender: FDA-Public Use
  Company Number: 2004UW20439

PATIENT
  Age: 72 Year
  Sex: Female

DRUGS (4)
  1. IRESSA [Suspect]
     Indication: BREAST CANCER
     Dosage: 250 MG DAILY PO
     Route: 048
     Dates: start: 20040729, end: 20040923
  2. ANASTROZOLE [Suspect]
     Indication: BREAST CANCER
     Dates: start: 20040729, end: 20040923
  3. FULVESTRANT [Suspect]
     Indication: BREAST CANCER
     Dates: start: 20040729
  4. ALEVE [Concomitant]

REACTIONS (4)
  - ALANINE AMINOTRANSFERASE INCREASED [None]
  - ASPARTATE AMINOTRANSFERASE INCREASED [None]
  - BLOOD ALKALINE PHOSPHATASE INCREASED [None]
  - BLOOD BILIRUBIN INCREASED [None]
